FAERS Safety Report 18651623 (Version 1)
Quarter: 2020Q4

REPORT INFORMATION
  Report Type: Spontaneous
  Country: BR (occurrence: BR)
  Receive Date: 20201222
  Receipt Date: 20201222
  Transmission Date: 20210114
  Serious: Yes (Other)
  Sender: FDA-Public Use
  Company Number: BR-009507513-2012BRA009559

PATIENT
  Sex: Male

DRUGS (2)
  1. PEMBROLIZUMAB. [Suspect]
     Active Substance: PEMBROLIZUMAB
  2. AXITINIB [Suspect]
     Active Substance: AXITINIB
     Dosage: 5MG, TWICE A DAY
     Route: 048

REACTIONS (3)
  - Disease progression [Not Recovered/Not Resolved]
  - Hepatotoxicity [Unknown]
  - Pneumonitis [Unknown]
